FAERS Safety Report 14371087 (Version 2)
Quarter: 2018Q3

REPORT INFORMATION
  Report Type: Spontaneous
  Country: US (occurrence: US)
  Receive Date: 20180110
  Receipt Date: 20180725
  Transmission Date: 20181010
  Serious: No
  Sender: FDA-Public Use
  Company Number: US-PFIZER INC-2018007998

PATIENT
  Age: 7 Year
  Sex: Female

DRUGS (1)
  1. GENOTROPIN [Suspect]
     Active Substance: SOMATROPIN
     Dosage: 1.2 MG, 1X/DAY
     Route: 058
     Dates: start: 20171231

REACTIONS (5)
  - Vomiting [Unknown]
  - Burning sensation [Unknown]
  - Weight fluctuation [Unknown]
  - Device leakage [Unknown]
  - Weight decreased [Unknown]
